FAERS Safety Report 23771277 (Version 1)
Quarter: 2024Q2

REPORT INFORMATION
  Report Type: Spontaneous
  Country: US (occurrence: US)
  Receive Date: 20240423
  Receipt Date: 20240423
  Transmission Date: 20240716
  Serious: Yes (Life-Threatening, Hospitalization, Other)
  Sender: FDA-Public Use
  Company Number: US-LUPIN PHARMACEUTICALS INC.-2024-03267

PATIENT
  Age: 39 Year
  Sex: Female

DRUGS (1)
  1. METFORMIN [Suspect]
     Active Substance: METFORMIN HYDROCHLORIDE
     Indication: Weight decreased
     Dosage: UNK (FORMULATION: PILL)
     Route: 065

REACTIONS (4)
  - Lactic acidosis [Recovering/Resolving]
  - Drug level increased [Unknown]
  - Intentional product misuse [Unknown]
  - Off label use [Unknown]
